FAERS Safety Report 15206891 (Version 2)
Quarter: 2018Q4

REPORT INFORMATION
  Report Type: Spontaneous
  Country: DE (occurrence: DE)
  Receive Date: 20180727
  Receipt Date: 20180810
  Transmission Date: 20190204
  Serious: Yes (Life-Threatening, Hospitalization)
  Sender: FDA-Public Use
  Company Number: DE-HIKMA PHARMACEUTICALS USA INC.-DE-H14001-18-06032

PATIENT
  Age: 77 Year
  Sex: Female

DRUGS (42)
  1. PACLITAXEL. [Suspect]
     Active Substance: PACLITAXEL
     Dosage: SAME DOSE ON 16/OCT/2013
     Route: 042
  2. CARBOPLATIN. [Suspect]
     Active Substance: CARBOPLATIN
     Dosage: SAME DOSE ON 06/NOV/2013
     Route: 065
  3. BAYOTENSIN [Concomitant]
     Active Substance: NITRENDIPINE
     Indication: HYPERTENSION
     Route: 042
  4. FELODIPIN [Concomitant]
     Active Substance: FELODIPINE
     Indication: HYPERTENSION
     Dates: start: 20140926
  5. DIAZEPAM. [Concomitant]
     Active Substance: DIAZEPAM
     Indication: DEPRESSION
     Route: 048
  6. CARBOPLATIN. [Suspect]
     Active Substance: CARBOPLATIN
     Route: 042
     Dates: start: 20131127
  7. CARBOPLATIN. [Suspect]
     Active Substance: CARBOPLATIN
     Dosage: SAME DOSE ON 16/NOV/2013
     Route: 042
     Dates: start: 20131116
  8. BEVACIZUMAB. [Suspect]
     Active Substance: BEVACIZUMAB
     Route: 042
     Dates: start: 20140918
  9. RAMIPRIL. [Concomitant]
     Active Substance: RAMIPRIL
     Indication: HYPERTENSION
     Route: 048
     Dates: start: 20140926
  10. CARBOPLATIN. [Suspect]
     Active Substance: CARBOPLATIN
     Dosage: SAME DOSE ON 16/NOV/2013
     Route: 065
  11. CARBOPLATIN. [Suspect]
     Active Substance: CARBOPLATIN
     Dosage: SAME DOSE ON 16/NOV/2013
     Route: 042
     Dates: start: 20131016
  12. CARBOPLATIN. [Suspect]
     Active Substance: CARBOPLATIN
     Dosage: SAME DOSE ON 06/NOV/2013
     Route: 065
     Dates: start: 20131106, end: 20131106
  13. BEVACIZUMAB. [Suspect]
     Active Substance: BEVACIZUMAB
     Route: 042
     Dates: start: 20140129
  14. BEVACIZUMAB. [Suspect]
     Active Substance: BEVACIZUMAB
     Route: 042
     Dates: start: 20131016
  15. CLONIDIN (GERMANY) [Concomitant]
     Indication: HYPERTENSION
     Route: 058
     Dates: start: 20130925, end: 20130925
  16. PACLITAXEL. [Suspect]
     Active Substance: PACLITAXEL
     Route: 042
     Dates: start: 20131016
  17. CARBOPLATIN. [Suspect]
     Active Substance: CARBOPLATIN
     Dosage: SAME DOSE ON 06/NOV/2013
     Route: 042
     Dates: start: 20130925, end: 20130925
  18. AVASTIN [Suspect]
     Active Substance: BEVACIZUMAB
     Route: 065
  19. FELODIPIN [Concomitant]
     Active Substance: FELODIPINE
     Route: 048
     Dates: start: 20140925
  20. VALSARTAN. [Concomitant]
     Active Substance: VALSARTAN
     Indication: HYPERTENSION
     Route: 048
     Dates: start: 20140926
  21. PACLITAXEL. [Suspect]
     Active Substance: PACLITAXEL
     Dosage: SAME DOSE ON 27/NOV/2013
     Route: 042
     Dates: start: 20131106
  22. CARBOPLATIN. [Suspect]
     Active Substance: CARBOPLATIN
     Dosage: SAME DOSE ON 06/NOV/2013
     Route: 042
     Dates: start: 20131106
  23. AVASTIN [Suspect]
     Active Substance: BEVACIZUMAB
     Indication: OVARIAN CANCER
     Route: 065
  24. SPASMEX (GERMANY) [Concomitant]
     Indication: INCONTINENCE
     Route: 048
     Dates: start: 201307
  25. PACLITAXEL. [Suspect]
     Active Substance: PACLITAXEL
     Dosage: SAME DOSE ON 27/NOV/2013
     Route: 042
     Dates: start: 20131127
  26. CARBOPLATIN. [Suspect]
     Active Substance: CARBOPLATIN
     Route: 065
  27. ANAFRANIL [Concomitant]
     Active Substance: CLOMIPRAMINE HYDROCHLORIDE
     Indication: DEPRESSION
     Route: 048
  28. PACLITAXEL. [Suspect]
     Active Substance: PACLITAXEL
     Dosage: 304-308 MG. SAME DOSE ON 04/SEP/2013
     Route: 042
     Dates: start: 20130904
  29. CARBOPLATIN. [Suspect]
     Active Substance: CARBOPLATIN
     Dosage: SAME DOSE ON 16/NOV/2013
     Route: 042
     Dates: start: 20130904
  30. BEVACIZUMAB. [Suspect]
     Active Substance: BEVACIZUMAB
     Route: 042
     Dates: start: 20140827, end: 20140827
  31. BEVACIZUMAB. [Suspect]
     Active Substance: BEVACIZUMAB
     Route: 042
     Dates: start: 20130904
  32. BAYOTENSIN [Concomitant]
     Active Substance: NITRENDIPINE
     Route: 048
     Dates: start: 20140423, end: 20140423
  33. PACLITAXEL. [Suspect]
     Active Substance: PACLITAXEL
     Indication: OVARIAN CANCER
     Dosage: 304-308 MG. SAME DOSE ON 04/SEP/2013
     Route: 042
     Dates: start: 20130814, end: 20131127
  34. PACLITAXEL. [Suspect]
     Active Substance: PACLITAXEL
     Dosage: SAME DOSE ON 27/NOV/2013
     Route: 042
  35. PACLITAXEL. [Suspect]
     Active Substance: PACLITAXEL
     Route: 042
     Dates: start: 20130925, end: 20130925
  36. CARBOPLATIN. [Suspect]
     Active Substance: CARBOPLATIN
     Indication: OVARIAN CANCER
     Route: 065
  37. CARBOPLATIN. [Suspect]
     Active Substance: CARBOPLATIN
     Route: 042
     Dates: start: 20130814, end: 20130814
  38. BEVACIZUMAB. [Suspect]
     Active Substance: BEVACIZUMAB
     Indication: OVARIAN CANCER
     Route: 042
     Dates: start: 20131218
  39. BEVACIZUMAB. [Suspect]
     Active Substance: BEVACIZUMAB
     Route: 042
     Dates: start: 20131106
  40. BAYOTENSIN [Concomitant]
     Active Substance: NITRENDIPINE
     Route: 042
     Dates: start: 20140625
  41. FERRO SANOL [Concomitant]
     Active Substance: FERROUS GLYCINE SULFATE
     Indication: PRODUCT USED FOR UNKNOWN INDICATION
     Route: 065
  42. MCP [Concomitant]
     Active Substance: METOCLOPRAMIDE HYDROCHLORIDE
     Indication: PRODUCT USED FOR UNKNOWN INDICATION
     Route: 048

REACTIONS (18)
  - Paraesthesia [Not Recovered/Not Resolved]
  - Pain in extremity [Recovered/Resolved]
  - Anaemia [Recovered/Resolved]
  - Dysgeusia [Recovered/Resolved]
  - Aspiration [Recovered/Resolved]
  - Bone pain [Recovered/Resolved]
  - Haemoglobin decreased [Not Recovered/Not Resolved]
  - Hemiparesis [Recovering/Resolving]
  - Nausea [Recovered/Resolved]
  - Memory impairment [Recovering/Resolving]
  - Aphasia [Recovering/Resolving]
  - Cardiovascular disorder [Not Recovered/Not Resolved]
  - Hypercholesterolaemia [Not Recovered/Not Resolved]
  - Hypoxia [Recovered/Resolved]
  - Pneumonia aspiration [Recovered/Resolved]
  - Dizziness [Not Recovered/Not Resolved]
  - Asphyxia [Recovered/Resolved]
  - Cerebral infarction [Recovered/Resolved with Sequelae]

NARRATIVE: CASE EVENT DATE: 20130904
